FAERS Safety Report 20683997 (Version 1)
Quarter: 2022Q2

REPORT INFORMATION
  Report Type: Spontaneous
  Country: US (occurrence: None)
  Receive Date: 20220405
  Receipt Date: 20220405
  Transmission Date: 20220721
  Serious: Yes (Other)
  Sender: FDA-Public Use
  Company Number: None

PATIENT
  Age: 21 Year
  Sex: Female
  Weight: 63.5 kg

DRUGS (1)
  1. PERIDEX [Suspect]
     Active Substance: CHLORHEXIDINE GLUCONATE
     Indication: Gingivitis
     Dosage: FREQUENCY : ONCE;?
     Route: 048
     Dates: start: 20220404

REACTIONS (1)
  - Urticaria [None]

NARRATIVE: CASE EVENT DATE: 20220404
